FAERS Safety Report 4335336-6 (Version None)
Quarter: 2004Q2

REPORT INFORMATION
  Report Type: 
  Country: None (occurrence: None)
  Receive Date: 20040409
  Receipt Date: 20040405
  Transmission Date: 20050107
  Serious: Yes (Hospitalization)
  Sender: FDA-Public Use
  Company Number: PHBS2004CZ04608

PATIENT
  Age: 68 Year
  Sex: Female

DRUGS (1)
  1. LAMISIL [Suspect]
     Dosage: 250 MG, QD
     Route: 048
     Dates: start: 20030918, end: 20031101

REACTIONS (2)
  - ABDOMINAL PAIN [None]
  - ACUTE ABDOMEN [None]
